FAERS Safety Report 6272212-6 (Version None)
Quarter: 2009Q3

REPORT INFORMATION
  Report Type: 
  Country: None (occurrence: None)
  Receive Date: 20090717
  Receipt Date: 20090708
  Transmission Date: 20100115
  Serious: Yes (Hospitalization)
  Sender: FDA-Public Use
  Company Number: FR-ELI_LILLY_AND_COMPANY-FR200906005972

PATIENT
  Age: 66 Year
  Sex: Female
  Weight: 54 kg

DRUGS (5)
  1. OPTRUMA [Suspect]
     Indication: OSTEOPOROSIS
     Dosage: 60 MG, DAILY (1/D)
     Route: 048
     Dates: start: 20060418, end: 20090321
  2. OPTRUMA [Suspect]
     Dosage: 60 MG, DAILY (1/D)
     Route: 048
     Dates: start: 20090101
  3. CACIT D3 [Concomitant]
     Dosage: 1 D/F, DAILY (1/D)
     Route: 065
  4. SEROPLEX [Concomitant]
     Dosage: 20 MG, DAILY (1/D)
     Route: 065
  5. TANAKAN [Concomitant]
     Dosage: 2 D/F, 2/D
     Route: 065

REACTIONS (2)
  - CEREBRAL ARTERIOSCLEROSIS [None]
  - ISCHAEMIC CEREBRAL INFARCTION [None]
